FAERS Safety Report 14424020 (Version 1)
Quarter: 2018Q1

REPORT INFORMATION
  Report Type: Spontaneous
  Country: US (occurrence: US)
  Receive Date: 20180121
  Receipt Date: 20180121
  Transmission Date: 20180509
  Serious: Yes (Death)
  Sender: FDA-Public Use
  Company Number: None

PATIENT
  Age: 4 Month
  Sex: Female

DRUGS (1)
  1. OSELTAMAVIR 6MG/ML [Suspect]
     Active Substance: OSELTAMIVIR
     Indication: ANTIVIRAL PROPHYLAXIS
     Route: 048
     Dates: start: 20180119, end: 20180120

REACTIONS (5)
  - Dyskinesia [None]
  - Agitation [None]
  - Abnormal behaviour [None]
  - Psychomotor hyperactivity [None]
  - Irritability [None]

NARRATIVE: CASE EVENT DATE: 20180119
